FAERS Safety Report 21043226 (Version 1)
Quarter: 2022Q3

REPORT INFORMATION
  Report Type: Spontaneous
  Country: NO (occurrence: NO)
  Receive Date: 20220705
  Receipt Date: 20220705
  Transmission Date: 20221026
  Serious: Yes (Hospitalization, Other)
  Sender: FDA-Public Use
  Company Number: NO-NOMAADVRE-PASRAPP-2022-V97een

PATIENT
  Age: 42 Year
  Sex: Female
  Weight: 64 kg

DRUGS (2)
  1. PROCRIN [Suspect]
     Active Substance: LEUPROLIDE ACETATE
     Indication: Endometriosis
     Dosage: 3.75 MILLIGRAM, MONTHLY
     Route: 065
     Dates: start: 20220218, end: 20220318
  2. PROCRIN [Suspect]
     Active Substance: LEUPROLIDE ACETATE
     Dosage: UNK
     Route: 065

REACTIONS (8)
  - Thrombosis [Recovering/Resolving]
  - Chest pain [Not Recovered/Not Resolved]
  - Vision blurred [Not Recovered/Not Resolved]
  - Inflammation [Not Recovered/Not Resolved]
  - Migraine [Recovered/Resolved with Sequelae]
  - Palpitations [Not Recovered/Not Resolved]
  - Concomitant disease aggravated [Unknown]
  - Endometriosis [Unknown]

NARRATIVE: CASE EVENT DATE: 20220301
